FAERS Safety Report 4751593-6 (Version None)
Quarter: 2005Q3

REPORT INFORMATION
  Report Type: 
  Country: None (occurrence: None)
  Receive Date: 20050822
  Receipt Date: 20050811
  Transmission Date: 20060218
  Serious: Yes (Death, Hospitalization)
  Sender: FDA-Public Use
  Company Number: 2004114921

PATIENT
  Age: 76 Year
  Sex: Male
  Weight: 98 kg

DRUGS (13)
  1. SPIRONOLACTONE [Suspect]
     Indication: ILL-DEFINED DISORDER
     Dosage: 100 MG (50 MG, DAILY), ORAL
     Route: 048
  2. CLOXACILLIN SODIUM [Suspect]
     Indication: ARTHRITIS BACTERIAL
     Dosage: SEE IMAGE
     Dates: start: 20040901, end: 20040914
  3. CLOXACILLIN SODIUM [Suspect]
     Indication: ARTHRITIS BACTERIAL
     Dosage: SEE IMAGE
     Dates: start: 20040920, end: 20041007
  4. RIFADIN [Suspect]
     Indication: ARTHRITIS BACTERIAL
     Dosage: OPHTHALMIC
     Route: 047
     Dates: start: 20040914, end: 20040920
  5. TAVANIC (LEVOFLOXACIN0 [Suspect]
     Indication: ARTHRITIS BACTERIAL
     Dosage: SEE IMAGE
     Dates: start: 20040914, end: 20041006
  6. TAVANIC (LEVOFLOXACIN0 [Suspect]
     Indication: ARTHRITIS BACTERIAL
     Dosage: SEE IMAGE
     Dates: start: 20040901
  7. FUROSEMIDE [Suspect]
     Indication: ILL-DEFINED DISORDER
     Dosage: 40 MG (40 MG, DAILY), ORAL
     Route: 048
  8. PARACETAMOL (PARACETAMOL) [Suspect]
     Indication: ILL-DEFINED DISORDER
     Dosage: 6 DOSES FORMS (TID), ORAL
     Route: 048
     Dates: start: 20040914, end: 20040921
  9. VITAMIN B1 AND B6 (PYRIDOXINE, THIAMINE) [Concomitant]
  10. POTASSIUM CHLORIDE [Concomitant]
  11. MOTILIUM [Concomitant]
  12. OXAZEPAM [Concomitant]
  13. DUPHALAC [Concomitant]

REACTIONS (17)
  - ABDOMINAL PAIN UPPER [None]
  - ALANINE AMINOTRANSFERASE INCREASED [None]
  - ASPARTATE AMINOTRANSFERASE INCREASED [None]
  - BILIRUBIN CONJUGATED INCREASED [None]
  - BLOOD ALBUMIN DECREASED [None]
  - BLOOD ALKALINE PHOSPHATASE INCREASED [None]
  - BLOOD BILIRUBIN INCREASED [None]
  - BLOOD BILIRUBIN UNCONJUGATED INCREASED [None]
  - CHOLESTASIS [None]
  - ENCEPHALOPATHY [None]
  - GAMMA-GLUTAMYLTRANSFERASE INCREASED [None]
  - HEPATIC CIRRHOSIS [None]
  - JAUNDICE [None]
  - LIVER DISORDER [None]
  - OEDEMA PERIPHERAL [None]
  - OESOPHAGEAL CANDIDIASIS [None]
  - PORTAL HYPERTENSION [None]
